FAERS Safety Report 13401977 (Version 3)
Quarter: 2017Q2

REPORT INFORMATION
  Report Type: Spontaneous
  Country: JP (occurrence: JP)
  Receive Date: 20170404
  Receipt Date: 20170426
  Transmission Date: 20170830
  Serious: Yes (Other)
  Sender: FDA-Public Use
  Company Number: JP-JNJFOC-20170317919

PATIENT
  Age: 96 Year
  Sex: Female

DRUGS (6)
  1. MAGNESIUM OXIDE. [Suspect]
     Active Substance: MAGNESIUM OXIDE
     Indication: DEMENTIA ALZHEIMER^S TYPE
     Route: 048
     Dates: end: 20170308
  2. ROHYPNOL [Suspect]
     Active Substance: FLUNITRAZEPAM
     Indication: DEMENTIA ALZHEIMER^S TYPE
     Route: 065
     Dates: end: 20170308
  3. RISPERDAL [Suspect]
     Active Substance: RISPERIDONE
     Indication: PSYCHOMOTOR HYPERACTIVITY
     Route: 048
     Dates: end: 20170308
  4. CELECOX [Suspect]
     Active Substance: CELECOXIB
     Indication: DEMENTIA ALZHEIMER^S TYPE
     Route: 048
     Dates: end: 20170308
  5. GRAMALIL [Suspect]
     Active Substance: TIAPRIDE HYDROCHLORIDE
     Indication: DEMENTIA ALZHEIMER^S TYPE
     Route: 048
     Dates: end: 20170308
  6. SEROQUEL [Suspect]
     Active Substance: QUETIAPINE FUMARATE
     Indication: DEMENTIA ALZHEIMER^S TYPE
     Route: 048
     Dates: end: 20170308

REACTIONS (6)
  - Product use in unapproved indication [Unknown]
  - Pneumonia aspiration [Recovering/Resolving]
  - Dysphagia [Recovering/Resolving]
  - Off label use [Unknown]
  - Sedation [Recovering/Resolving]
  - Decubitus ulcer [Recovering/Resolving]

NARRATIVE: CASE EVENT DATE: 20170308
